FAERS Safety Report 6968358-7 (Version None)
Quarter: 2010Q3

REPORT INFORMATION
  Report Type: 
  Country: None (occurrence: None)
  Receive Date: 20100907
  Receipt Date: 20100827
  Transmission Date: 20110219
  Serious: Yes (Hospitalization)
  Sender: FDA-Public Use
  Company Number: NL-ROCHE-723836

PATIENT
  Sex: Male

DRUGS (6)
  1. CAPECITABINE [Suspect]
     Dosage: LAST CYCLE ON 22 JUL 2010
     Route: 048
     Dates: start: 20091119, end: 20100722
  2. BEVACIZUMAB [Suspect]
     Dosage: DATE OF LAST CYCLE 23 JUL 2010
     Route: 042
     Dates: start: 20091119, end: 20100723
  3. OXALIPLATIN [Suspect]
     Dosage: LAST CYCLE ON 22 JUL 2010
     Route: 042
     Dates: start: 20091119, end: 20100722
  4. DEXAMETHASONE [Concomitant]
  5. CARBASALATE CALCIUM [Concomitant]
  6. TRAMADOL HCL [Concomitant]

REACTIONS (1)
  - GASTROINTESTINAL ANASTOMOTIC LEAK [None]
